FAERS Safety Report 7422405-7 (Version None)
Quarter: 2011Q2

REPORT INFORMATION
  Report Type: 
  Country: None (occurrence: None)
  Receive Date: 20110419
  Receipt Date: 20110407
  Transmission Date: 20111010
  Serious: No
  Sender: FDA-Public Use
  Company Number: US-BIOGENIDEC-2011BI013549

PATIENT
  Age: 42 Year
  Sex: Female

DRUGS (3)
  1. TYSABRI [Suspect]
     Indication: MULTIPLE SCLEROSIS
     Route: 042
     Dates: start: 20110127
  2. UFLEXA [Concomitant]
     Indication: ARTHRALGIA
  3. UFLEXA [Concomitant]
     Indication: PAIN IN EXTREMITY

REACTIONS (3)
  - PERIPHERAL COLDNESS [None]
  - PAIN IN EXTREMITY [None]
  - ARTHRALGIA [None]
